FAERS Safety Report 5663713-X (Version None)
Quarter: 2008Q1

REPORT INFORMATION
  Report Type: 
  Country: None (occurrence: None)
  Receive Date: 20080310
  Receipt Date: 20080227
  Transmission Date: 20080703
  Serious: Yes (Other)
  Sender: FDA-Public Use
  Company Number: 2008004154

PATIENT
  Age: 55 Year
  Sex: Male
  Weight: 122 kg

DRUGS (2)
  1. VISINE A.C. (ZINC SULFATE, TETRYZOLINE) [Suspect]
     Indication: EYE DISORDER
     Dosage: 1 OR 2 DROPS IN EACH EYE ONCE DAILY, OPHTHALMIC
     Route: 047
     Dates: start: 20080214, end: 20080215
  2. ACTOS [Concomitant]

REACTIONS (4)
  - EYE IRRITATION [None]
  - HALO VISION [None]
  - NIGHT BLINDNESS [None]
  - VISION BLURRED [None]
